FAERS Safety Report 8970805 (Version 1)
Quarter: 2012Q4

REPORT INFORMATION
  Report Type: 
  Country: US (occurrence: US)
  Receive Date: 20121218
  Receipt Date: 20121218
  Transmission Date: 20130627
  Serious: Yes (Hospitalization, Other)
  Sender: FDA-Public Use
  Company Number: US-ELI_LILLY_AND_COMPANY-US201212002307

PATIENT
  Sex: Male

DRUGS (11)
  1. HUMALOG LISPRO [Suspect]
     Indication: DIABETES MELLITUS
     Dosage: 5 u, prn
  2. HUMALOG LISPRO [Suspect]
     Dosage: 5 u, prn
  3. HUMALOG LISPRO [Suspect]
     Dosage: 5 u, prn
  4. HUMALOG LISPRO [Suspect]
     Dosage: 5 u, prn
  5. HUMALOG LISPRO [Suspect]
     Dosage: 5 u, prn
  6. HUMALOG LISPRO [Suspect]
     Dosage: 5 u, prn
  7. LANTUS [Concomitant]
     Dosage: UNK, prn
  8. PLAVIX [Concomitant]
     Indication: MYOCARDIAL INFARCTION
     Dosage: UNK, unknown
  9. ASPIRIN [Concomitant]
     Indication: MYOCARDIAL INFARCTION
     Dosage: UNK, unknown
  10. SYNTHROID [Concomitant]
     Indication: THYROID DISORDER
     Dosage: UNK, unknown
  11. TOPROL [Concomitant]
     Dosage: UNK, unknown

REACTIONS (9)
  - Road traffic accident [Recovered/Resolved]
  - Loss of consciousness [Recovered/Resolved]
  - Amnesia [Unknown]
  - Carpal tunnel syndrome [Unknown]
  - Eye disorder [Unknown]
  - Mental impairment [Unknown]
  - Blood glucose increased [Unknown]
  - Feeling abnormal [Unknown]
  - Drug ineffective [Unknown]
